FAERS Safety Report 15591350 (Version 1)
Quarter: 2018Q4

REPORT INFORMATION
  Report Type: Spontaneous
  Country: US (occurrence: US)
  Receive Date: 20181107
  Receipt Date: 20181107
  Transmission Date: 20190205
  Serious: No
  Sender: FDA-Public Use
  Company Number: US-HORIZON-PRE-0494-2018

PATIENT
  Sex: Female

DRUGS (1)
  1. RAYOS [Suspect]
     Active Substance: PREDNISONE
     Indication: PRODUCT USED FOR UNKNOWN INDICATION
     Dosage: 5 MG ONLY ONE TIME
     Dates: start: 20181029, end: 20181029

REACTIONS (2)
  - Urticaria [Unknown]
  - Swelling face [Unknown]

NARRATIVE: CASE EVENT DATE: 20181030
